FAERS Safety Report 12294426 (Version 1)
Quarter: 2016Q2

REPORT INFORMATION
  Report Type: Spontaneous
  Country: US (occurrence: US)
  Receive Date: 20160422
  Receipt Date: 20160422
  Transmission Date: 20160815
  Serious: Yes (Other)
  Sender: FDA-Public Use
  Company Number: US-AMGEN-USASP2016048966

PATIENT
  Age: 64 Year
  Sex: Male

DRUGS (24)
  1. LYRICA [Suspect]
     Active Substance: PREGABALIN
     Indication: PRODUCT USED FOR UNKNOWN INDICATION
     Dosage: 75 MG, BID FOR 30DAYS
     Route: 065
     Dates: start: 20160307
  2. K-DUR [Concomitant]
     Active Substance: POTASSIUM CHLORIDE
     Dosage: 1 DF, BID
     Route: 048
  3. TURMERIC CURCUMIN [Concomitant]
     Active Substance: TURMERIC
     Dosage: 1 DF, TID
     Route: 048
  4. COREG [Concomitant]
     Active Substance: CARVEDILOL
     Dosage: 12.5 MG, BID
     Route: 048
  5. GLUCOTROL [Suspect]
     Active Substance: GLIPIZIDE
     Indication: PRODUCT USED FOR UNKNOWN INDICATION
     Dosage: 5 MG, BID
     Route: 048
  6. CYANOCOBALAMIN. [Concomitant]
     Active Substance: CYANOCOBALAMIN
     Dosage: 250 MUG, QD
     Route: 048
  7. ZESTRIL [Concomitant]
     Active Substance: LISINOPRIL
     Dosage: 2.5 MG, BID
     Route: 048
  8. ELIQUIS [Suspect]
     Active Substance: APIXABAN
     Indication: PRODUCT USED FOR UNKNOWN INDICATION
     Dosage: 5 MG, BID
     Route: 048
  9. ZYLOPRIM [Concomitant]
     Active Substance: ALLOPURINOL
     Dosage: 100 MG, QD
     Route: 048
  10. CORLANOR [Suspect]
     Active Substance: IVABRADINE HYDROCHLORIDE
     Indication: PRODUCT USED FOR UNKNOWN INDICATION
     Dosage: UNK
     Route: 065
  11. FLECTOR /00372302/ [Suspect]
     Active Substance: DICLOFENAC SODIUM
     Indication: PAIN
     Dosage: 1.3 %, 12, HOUR PATCH 2 PATCH EVERY 12 HOURS FOR 30 DAYS
     Route: 062
  12. DEMADEX [Concomitant]
     Active Substance: TORSEMIDE
     Dosage: 40 MG, BID
     Route: 048
  13. COLCHICINE. [Concomitant]
     Active Substance: COLCHICINE
     Dosage: 1.2 MG, QD
     Route: 048
  14. GLYCOLAX [Concomitant]
     Active Substance: POLYETHYLENE GLYCOL 3350
     Dosage: 17 G, QD
     Route: 048
  15. IMDUR [Concomitant]
     Active Substance: ISOSORBIDE MONONITRATE
     Dosage: 60 MG, QD
     Route: 048
  16. MOBIC [Concomitant]
     Active Substance: MELOXICAM
     Dosage: 7.5 MG, QD
     Route: 048
  17. ALDACTONE [Suspect]
     Active Substance: SPIRONOLACTONE
     Indication: PRODUCT USED FOR UNKNOWN INDICATION
     Dosage: 25 MG, QD
     Route: 048
  18. MIRALAX [Concomitant]
     Active Substance: POLYETHYLENE GLYCOL 3350
     Dosage: 17 G, QD
     Route: 048
  19. DOCUSATE SODIUM. [Concomitant]
     Active Substance: DOCUSATE SODIUM
     Dosage: 100 MG, QD
     Route: 048
  20. SELENIUM [Concomitant]
     Active Substance: SELENIUM
     Dosage: 200 MUG, QD
     Route: 048
  21. HAWTHORNE [Concomitant]
     Dosage: 1100 MG, BID
     Route: 048
  22. APRESOLINE HYDROCHLORIDE [Concomitant]
     Active Substance: HYDRALAZINE HYDROCHLORIDE
     Dosage: 50 MG, TID
     Route: 048
  23. PERCOCET [Concomitant]
     Active Substance: ACETAMINOPHEN\OXYCODONE HYDROCHLORIDE
     Dosage: 1 DF, QID
     Route: 048
  24. PRINIVIL [Concomitant]
     Active Substance: LISINOPRIL
     Dosage: 2.5 MG, BID
     Route: 048

REACTIONS (5)
  - Drug hypersensitivity [Unknown]
  - Diabetic complication [Unknown]
  - Abdominal pain [Unknown]
  - Wheezing [Unknown]
  - Palpitations [Unknown]

NARRATIVE: CASE EVENT DATE: 20160307
